FAERS Safety Report 23920057 (Version 1)
Quarter: 2024Q2

REPORT INFORMATION
  Report Type: Spontaneous
  Country: CN (occurrence: CN)
  Receive Date: 20240530
  Receipt Date: 20240530
  Transmission Date: 20240716
  Serious: Yes (Hospitalization, Other)
  Sender: FDA-Public Use
  Company Number: CN-009507513-2405CHN008833

PATIENT
  Age: 64 Year
  Sex: Female
  Weight: 41 kg

DRUGS (1)
  1. STEGLATRO [Suspect]
     Active Substance: ERTUGLIFLOZIN PIDOLATE
     Indication: Diabetes mellitus
     Dosage: 5 MG, QD, ORALLY
     Route: 048
     Dates: start: 20230802, end: 20240517

REACTIONS (2)
  - Diabetes mellitus inadequate control [Unknown]
  - Vulvovaginal mycotic infection [Recovering/Resolving]

NARRATIVE: CASE EVENT DATE: 20240517
